FAERS Safety Report 7915713-4 (Version None)
Quarter: 2011Q4

REPORT INFORMATION
  Report Type: 
  Country: None (occurrence: None)
  Receive Date: 20111115
  Receipt Date: 20111025
  Transmission Date: 20120403
  Serious: Yes (Life-Threatening)
  Sender: FDA-Public Use
  Company Number: JP-GLAXOSMITHKLINE-B0758934A

PATIENT
  Sex: Female

DRUGS (2)
  1. ARIXTRA [Suspect]
     Indication: PULMONARY EMBOLISM
     Dosage: 7.5MG PER DAY
     Route: 058
     Dates: start: 20111016, end: 20111024
  2. WARFARIN SODIUM [Concomitant]
     Indication: PULMONARY EMBOLISM
     Dosage: 4MG PER DAY
     Route: 048
     Dates: start: 20111016, end: 20111024

REACTIONS (7)
  - SHOCK HAEMORRHAGIC [None]
  - RENAL FAILURE [None]
  - ARTERIAL HAEMORRHAGE [None]
  - RETROPERITONEAL HAEMORRHAGE [None]
  - SHOCK [None]
  - ANAEMIA [None]
  - ABDOMINAL PAIN [None]
